FAERS Safety Report 6145452-4 (Version None)
Quarter: 2009Q2

REPORT INFORMATION
  Report Type: 
  Country: None (occurrence: None)
  Receive Date: 20090406
  Receipt Date: 20090325
  Transmission Date: 20091009
  Serious: Yes (Hospitalization)
  Sender: FDA-Public Use
  Company Number: ES-ELI_LILLY_AND_COMPANY-ES200903007198

PATIENT
  Age: 57 Year
  Sex: Female

DRUGS (7)
  1. FORTEO [Suspect]
     Indication: OSTEOPOROSIS
     Dates: start: 20080201, end: 20090216
  2. INFLIXIMAB [Concomitant]
     Indication: COLITIS ULCERATIVE
     Route: 042
  3. URBASON                                 /GFR/ [Concomitant]
  4. CLAVERSAL [Concomitant]
  5. FOLIC ACID [Concomitant]
  6. INSULIN [Concomitant]
     Indication: DIABETES MELLITUS
  7. CALCIUM [Concomitant]
     Indication: OSTEOPOROSIS

REACTIONS (5)
  - ASTHENIA [None]
  - ILEUS PARALYTIC [None]
  - ORAL INFECTION [None]
  - PAIN [None]
  - URINARY TRACT INFECTION [None]
